FAERS Safety Report 13309531 (Version 1)
Quarter: 2017Q1

REPORT INFORMATION
  Report Type: Report from Study
  Country: US (occurrence: US)
  Receive Date: 20170308
  Receipt Date: 20170308
  Transmission Date: 20170428
  Serious: No
  Sender: FDA-Public Use
  Company Number: US-AMGEN-USASL2016039117

PATIENT
  Sex: Male

DRUGS (1)
  1. SENSIPAR [Suspect]
     Active Substance: CINACALCET HYDROCHLORIDE
     Indication: BLOOD PARATHYROID HORMONE INCREASED
     Dosage: 30 MG, UNK
     Route: 048
     Dates: start: 201412

REACTIONS (4)
  - Myalgia [Unknown]
  - Blood parathyroid hormone abnormal [Unknown]
  - Adverse drug reaction [Unknown]
  - Fatigue [Unknown]
